FAERS Safety Report 6831724-4 (Version None)
Quarter: 2010Q3

REPORT INFORMATION
  Report Type: 
  Country: None (occurrence: None)
  Receive Date: 20100707
  Receipt Date: 20100624
  Transmission Date: 20110219
  Serious: Yes (Hospitalization)
  Sender: FDA-Public Use
  Company Number: A-US2008-21897

PATIENT
  Age: 60 Year
  Sex: Male

DRUGS (1)
  1. TRACLEER [Suspect]
     Indication: PULMONARY ARTERIAL HYPERTENSION
     Dosage: 125 MG, BID, ORAL
     Route: 048
     Dates: start: 20080904

REACTIONS (8)
  - ARTHRALGIA [None]
  - FATIGUE [None]
  - H1N1 INFLUENZA [None]
  - HEADACHE [None]
  - HOT FLUSH [None]
  - MYALGIA [None]
  - ONYCHOCLASIS [None]
  - PNEUMONIA [None]
